FAERS Safety Report 5315978-1 (Version None)
Quarter: 2007Q2

REPORT INFORMATION
  Report Type: 
  Country: None (occurrence: None)
  Receive Date: 20070503
  Receipt Date: 20070423
  Transmission Date: 20071010
  Serious: Yes (Other)
  Sender: FDA-Public Use
  Company Number: JP-SANOFI-SYNTHELABO-A01200702152

PATIENT
  Sex: Male
  Weight: 67 kg

DRUGS (9)
  1. PLAVIX [Suspect]
     Indication: TRANSIENT ISCHAEMIC ATTACK
     Route: 048
     Dates: start: 20061111, end: 20070228
  2. MICARDIS [Concomitant]
     Indication: HYPERTENSION
     Route: 048
     Dates: start: 20050928
  3. CYANOCOBALAMIN [Concomitant]
     Indication: DRUG USE FOR UNKNOWN INDICATION
     Route: 065
  4. NOVOLIN N [Concomitant]
     Indication: DIABETES MELLITUS NON-INSULIN-DEPENDENT
     Route: 058
     Dates: start: 20050323
  5. JUVELA NICOTINATE [Concomitant]
     Indication: HYPERLIPIDAEMIA
     Route: 048
     Dates: start: 20050319
  6. CEPHADOL [Concomitant]
     Indication: DIZZINESS
     Route: 065
     Dates: start: 20050319
  7. EPADEL S [Concomitant]
     Indication: HYPERTENSION
     Route: 048
     Dates: start: 20060826
  8. CALBLOCK [Concomitant]
     Indication: HYPERTENSION
     Route: 065
     Dates: start: 20060817
  9. NOVORAPID [Concomitant]
     Indication: DIABETES MELLITUS NON-INSULIN-DEPENDENT
     Route: 058
     Dates: start: 20050323

REACTIONS (2)
  - RETINAL HAEMORRHAGE [None]
  - RHABDOMYOLYSIS [None]
